FAERS Safety Report 8525940-3 (Version None)
Quarter: 2012Q3

REPORT INFORMATION
  Report Type: 
  Country: None (occurrence: None)
  Receive Date: 20120720
  Receipt Date: 20120717
  Transmission Date: 20120928
  Serious: No
  Sender: FDA-Public Use
  Company Number: US-PFIZER INC-2012172521

PATIENT
  Sex: Female
  Weight: 118 kg

DRUGS (5)
  1. GLYBURIDE [Concomitant]
     Indication: DIABETES MELLITUS
     Dosage: UNK
  2. LORTAB [Concomitant]
     Indication: DIABETIC NEUROPATHY
     Dosage: UNK, AS NEEDED
  3. LYRICA [Suspect]
     Dosage: 75 MG, 1X/DAY
     Route: 048
     Dates: start: 20120707
  4. LORTAB [Concomitant]
  5. LYRICA [Suspect]
     Indication: PAIN IN EXTREMITY
     Dosage: 75 MG, 3X/DAY
     Route: 048
     Dates: start: 20110101, end: 20120707

REACTIONS (3)
  - BLOOD CHOLESTEROL INCREASED [None]
  - PAIN [None]
  - PAIN IN EXTREMITY [None]
